FAERS Safety Report 25746836 (Version 1)
Quarter: 2025Q3

REPORT INFORMATION
  Report Type: Report from Study
  Country: CA (occurrence: CA)
  Receive Date: 20250901
  Receipt Date: 20250901
  Transmission Date: 20251020
  Serious: Yes (Hospitalization, Other)
  Sender: EXELIXIS
  Company Number: CA-IPSEN Group, Research and Development-2025-19280

PATIENT
  Age: 75 Year
  Sex: Male

DRUGS (10)
  1. CABOMETYX [Suspect]
     Active Substance: CABOZANTINIB S-MALATE
     Indication: Renal cell carcinoma
     Dosage: 60 MG, QD
     Route: 048
     Dates: start: 20250707
  2. FISH OIL [Concomitant]
     Active Substance: FISH OIL
  3. TUMS [Concomitant]
     Active Substance: CALCIUM CARBONATE
  4. ASPIRIN [Concomitant]
     Active Substance: ASPIRIN
     Dosage: 81MG PO DIE
     Route: 048
  5. FERROUS GLUCONATE [Concomitant]
     Active Substance: FERROUS GLUCONATE
     Route: 048
  6. METOPROLOL [Concomitant]
     Active Substance: METOPROLOL
  7. ROSUVASTATIN [Concomitant]
     Active Substance: ROSUVASTATIN
     Dosage: 10MG PO DIE
  8. RAMIPRIL [Concomitant]
     Active Substance: RAMIPRIL
     Dosage: 15MG PO DIE,
  9. ZOPICLONE [Concomitant]
     Active Substance: ZOPICLONE
     Route: 048
  10. VARENICLINE TARTRATE [Concomitant]
     Active Substance: VARENICLINE TARTRATE
     Route: 048

REACTIONS (6)
  - Clostridium difficile infection [Unknown]
  - Acute kidney injury [Unknown]
  - Diarrhoea [Not Recovered/Not Resolved]
  - Fatigue [Not Recovered/Not Resolved]
  - Decreased appetite [Not Recovered/Not Resolved]
  - Inappropriate schedule of product administration [Unknown]

NARRATIVE: CASE EVENT DATE: 20250731
